FAERS Safety Report 21044334 (Version 1)
Quarter: 2022Q3

REPORT INFORMATION
  Report Type: Spontaneous
  Country: US (occurrence: None)
  Receive Date: 20220703
  Receipt Date: 20220703
  Transmission Date: 20221027
  Serious: Yes (Hospitalization, Other)
  Sender: FDA-Public Use
  Company Number: None

PATIENT
  Age: 58 Year
  Sex: Female
  Weight: 86.85 kg

DRUGS (1)
  1. LYBALVI [Suspect]
     Active Substance: OLANZAPINE\SAMIDORPHAN L-MALATE
     Indication: Psychotic disorder
     Dosage: FREQUENCY : DAILY;?
     Route: 048
     Dates: start: 20220630, end: 20220701

REACTIONS (2)
  - Cerebrovascular accident [None]
  - Thrombosis [None]

NARRATIVE: CASE EVENT DATE: 20220701
